FAERS Safety Report 8825438 (Version 1)
Quarter: 2012Q4

REPORT INFORMATION
  Report Type: 
  Country: DE (occurrence: DE)
  Receive Date: 20121004
  Receipt Date: 20121004
  Transmission Date: 20130627
  Serious: Yes (Other)
  Sender: FDA-Public Use
  Company Number: DE-TEVA-360084GER

PATIENT
  Age: 69 Year
  Sex: Female

DRUGS (3)
  1. BISOPROLOL [Suspect]
     Indication: PALPITATIONS
     Dosage: 2.5 Milligram Daily; 2,5mg-0-0
     Route: 048
     Dates: start: 2009, end: 2012
  2. BISOPROLOL [Suspect]
     Dosage: 1.25 Milligram Daily; 1.25mg-0-0
     Route: 048
     Dates: start: 2012
  3. DIOVAN [Concomitant]

REACTIONS (7)
  - Hyperthyroidism [Unknown]
  - Thyroid neoplasm [Unknown]
  - Palpitations [Unknown]
  - Alopecia [Unknown]
  - Myalgia [Unknown]
  - Insomnia [Unknown]
  - Condition aggravated [None]
